FAERS Safety Report 8012291-9 (Version None)
Quarter: 2011Q4

REPORT INFORMATION
  Report Type: 
  Country: None (occurrence: None)
  Receive Date: 20111228
  Receipt Date: 20111222
  Transmission Date: 20120403
  Serious: Yes (Hospitalization)
  Sender: FDA-Public Use
  Company Number: JP-ABBOTT-11P-087-0870770-00

PATIENT
  Sex: Male

DRUGS (5)
  1. FOLIC ACID [Concomitant]
     Indication: ADVERSE REACTION
  2. FOLIC ACID [Concomitant]
     Indication: PROPHYLAXIS
     Route: 048
  3. METHOTREXATE [Concomitant]
     Indication: RHEUMATOID ARTHRITIS
     Route: 048
  4. HUMIRA [Suspect]
     Indication: RHEUMATOID ARTHRITIS
     Route: 058
     Dates: start: 20110614
  5. PREDNISOLONE [Concomitant]
     Indication: RHEUMATOID ARTHRITIS
     Route: 048

REACTIONS (3)
  - GASTROENTERITIS [None]
  - NASOPHARYNGITIS [None]
  - DIARRHOEA [None]
